FAERS Safety Report 16521869 (Version 3)
Quarter: 2019Q3

REPORT INFORMATION
  Report Type: Report from Study
  Country: PT (occurrence: PT)
  Receive Date: 20190703
  Receipt Date: 20190910
  Transmission Date: 20191004
  Serious: Yes (Hospitalization)
  Sender: FDA-Public Use
  Company Number: PT-ROCHE-2347173

PATIENT
  Age: 56 Year
  Sex: Female

DRUGS (8)
  1. TRASTUZUMAB. [Suspect]
     Active Substance: TRASTUZUMAB
     Dosage: DOSE PRIOR TO SAE: 18/JUN/2019, CYCLE 11
     Route: 058
     Dates: start: 20190723
  2. PERTUZUMAB. [Suspect]
     Active Substance: PERTUZUMAB
     Indication: HER-2 POSITIVE BREAST CANCER
     Dosage: DOSE PRIOR TO SAE: 18/JUN/2019, CYCLE 11
     Route: 042
     Dates: start: 20181120, end: 20190709
  3. PERTUZUMAB. [Suspect]
     Active Substance: PERTUZUMAB
     Dosage: DOSE PRIOR TO SAE: 18/JUN/2019, CYCLE 11
     Route: 042
     Dates: start: 20190723
  4. CARBOPLATIN. [Suspect]
     Active Substance: CARBOPLATIN
     Dosage: DOSE PRIOR TO SAE: 18/JUN/2019, CYCLE 11
     Route: 042
     Dates: start: 20190723
  5. DOCETAXEL. [Suspect]
     Active Substance: DOCETAXEL
     Indication: HER-2 POSITIVE BREAST CANCER
     Dosage: DOSE PRIOR TO SAE: 18/JUN/2019, CYCLE 11
     Route: 042
     Dates: start: 20180528, end: 20190709
  6. TRASTUZUMAB. [Suspect]
     Active Substance: TRASTUZUMAB
     Indication: HER-2 POSITIVE BREAST CANCER
     Dosage: DOSE PRIOR TO SAE: 18/JUN/2019, CYCLE 11
     Route: 058
     Dates: start: 20181120, end: 20190709
  7. CARBOPLATIN. [Suspect]
     Active Substance: CARBOPLATIN
     Indication: HER-2 POSITIVE BREAST CANCER
     Dosage: DOSE PRIOR TO SAE: 18/JUN/2019, CYCLE 11
     Route: 042
     Dates: start: 20180528, end: 20190709
  8. DOCETAXEL. [Suspect]
     Active Substance: DOCETAXEL
     Dosage: DOSE PRIOR TO SAE: 18/JUN/2019, CYCLE 11
     Route: 042
     Dates: start: 20190723

REACTIONS (1)
  - Febrile neutropenia [Recovered/Resolved]

NARRATIVE: CASE EVENT DATE: 20190627
